FAERS Safety Report 9859013 (Version 2)
Quarter: 2014Q1

REPORT INFORMATION
  Report Type: Spontaneous
  Country: DE (occurrence: DE)
  Receive Date: 20140131
  Receipt Date: 20140305
  Transmission Date: 20141002
  Serious: No
  Sender: FDA-Public Use
  Company Number: DE-PFIZER INC-2014028394

PATIENT
  Age: 82 Year
  Sex: Male

DRUGS (4)
  1. PANTOPRAZOLE [Suspect]
     Indication: GASTROOESOPHAGEAL REFLUX DISEASE
     Dosage: 40 MG, DAILY
     Route: 048
     Dates: start: 20121020, end: 20140131
  2. PANTOPRAZOLE [Suspect]
     Dosage: 20 MG, DAILY
     Route: 048
     Dates: start: 20140131
  3. LOCOL [Suspect]
     Dosage: 40 MG, DAILY
     Route: 065
  4. ACETYLSALICYLIC ACID [Concomitant]
     Indication: MYOCARDIAL INFARCTION
     Dosage: UNK
     Dates: start: 20121020

REACTIONS (3)
  - Eyelid oedema [Not Recovered/Not Resolved]
  - Eczema [Not Recovered/Not Resolved]
  - Oedema due to cardiac disease [Recovered/Resolved]
